FAERS Safety Report 19436863 (Version 1)
Quarter: 2021Q2

REPORT INFORMATION
  Report Type: Other
  Country: CN (occurrence: CN)
  Receive Date: 20210618
  Receipt Date: 20210618
  Transmission Date: 20210717
  Serious: Yes (Other)
  Sender: FDA-Public Use
  Company Number: CN-ROCHE-2851216

PATIENT
  Sex: Female
  Weight: 2.86 kg

DRUGS (1)
  1. VALCYTE [Suspect]
     Active Substance: VALGANCICLOVIR HYDROCHLORIDE
     Indication: CONGENITAL CYTOMEGALOVIRUS INFECTION
     Dosage: THE DRUG WAS PREPARED AS A SUSPENSION, THE DOSE WAS ADJUSTED ACCORDING TO BODY WEIGHT
     Route: 048

REACTIONS (3)
  - Off label use [Unknown]
  - Alanine aminotransferase increased [Recovered/Resolved]
  - Granulocytopenia [Recovered/Resolved]
